FAERS Safety Report 16499402 (Version 1)
Quarter: 2019Q2

REPORT INFORMATION
  Report Type: Spontaneous
  Country: US (occurrence: US)
  Receive Date: 20190520
  Receipt Date: 20190520
  Transmission Date: 20190711
  Serious: Yes (Other)
  Sender: FDA-Public Use
  Company Number: None

PATIENT
  Age: 65 Year
  Sex: Female
  Weight: 86.64 kg

DRUGS (8)
  1. CLONAZEPAM. [Concomitant]
     Active Substance: CLONAZEPAM
  2. SINGULAIR [Concomitant]
     Active Substance: MONTELUKAST SODIUM
  3. FLONASE [Concomitant]
     Active Substance: FLUTICASONE PROPIONATE
  4. LOSARTAN. [Concomitant]
     Active Substance: LOSARTAN
  5. TOLTERODINE TARTRATE ER 4MG [Suspect]
     Active Substance: TOLTERODINE TARTRATE
     Indication: HYPERTONIC BLADDER
     Dates: start: 20190411, end: 20190501
  6. LEXAPRO [Concomitant]
     Active Substance: ESCITALOPRAM OXALATE
  7. FOSAMAX [Concomitant]
     Active Substance: ALENDRONATE SODIUM
  8. CENTRUM SILVER WOMENS [Concomitant]

REACTIONS (3)
  - Micturition urgency [None]
  - Urinary incontinence [None]
  - Product substitution issue [None]

NARRATIVE: CASE EVENT DATE: 20190412
